FAERS Safety Report 5420874-5 (Version None)
Quarter: 2007Q3

REPORT INFORMATION
  Report Type: 
  Country: None (occurrence: None)
  Receive Date: 20070817
  Receipt Date: 20070817
  Transmission Date: 20080115
  Serious: Yes (Hospitalization)
  Sender: FDA-Public Use
  Company Number: None

PATIENT
  Sex: Male
  Weight: 75.45 kg

DRUGS (10)
  1. CARBOPLATIN [Suspect]
     Dosage: 378 MG
     Dates: end: 20050418
  2. TAXOL [Suspect]
     Dosage: 323 MG
     Dates: end: 20050418
  3. ADVAIR DISKUS 100/50 [Concomitant]
  4. COMBIVANT [Concomitant]
  5. DEXEMETHASONE [Concomitant]
  6. EMEND [Concomitant]
  7. LASIX [Concomitant]
  8. LEXAPRO [Concomitant]
  9. PROCHLORPERAZINE [Concomitant]
  10. WARFARIN SODIUM [Concomitant]

REACTIONS (13)
  - ANAEMIA [None]
  - ARTERIOSCLEROSIS [None]
  - CEREBROVASCULAR DISORDER [None]
  - CHRONIC OBSTRUCTIVE PULMONARY DISEASE [None]
  - CORONARY ARTERY STENOSIS [None]
  - LUNG NEOPLASM MALIGNANT [None]
  - NEUTROPENIA [None]
  - PERIPHERAL VASCULAR DISORDER [None]
  - PNEUMONIA KLEBSIELLA [None]
  - PNEUMONIA PNEUMOCOCCAL [None]
  - RESPIRATORY FAILURE [None]
  - SEPSIS [None]
  - SEPTIC SHOCK [None]
